FAERS Safety Report 13744918 (Version 2)
Quarter: 2017Q3

REPORT INFORMATION
  Report Type: Spontaneous
  Country: US (occurrence: US)
  Receive Date: 20170712
  Receipt Date: 20170731
  Transmission Date: 20171127
  Serious: No
  Sender: FDA-Public Use
  Company Number: US-PFIZER INC-2017300655

PATIENT
  Age: 39 Year
  Sex: Female

DRUGS (1)
  1. METHOTREXATE SODIUM. [Suspect]
     Active Substance: METHOTREXATE SODIUM
     Dosage: 10 MG, UNK

REACTIONS (7)
  - Paraesthesia [Unknown]
  - Drug ineffective [Unknown]
  - Tenderness [Unknown]
  - Infection [Unknown]
  - Synovitis [Unknown]
  - Hernia [Unknown]
  - Pain [Unknown]
